FAERS Safety Report 22139212 (Version 1)
Quarter: 2023Q1

REPORT INFORMATION
  Report Type: Spontaneous
  Country: US (occurrence: US)
  Receive Date: 20230327
  Receipt Date: 20230327
  Transmission Date: 20230417
  Serious: No
  Sender: FDA-Public Use
  Company Number: US-GSK-US2023041923

PATIENT
  Age: 35 Year
  Sex: Male

DRUGS (1)
  1. FLOVENT HFA [Suspect]
     Active Substance: FLUTICASONE PROPIONATE
     Indication: Eosinophilic oesophagitis
     Dosage: 2 PUFF(S), BID
     Dates: start: 20230301

REACTIONS (1)
  - Product prescribing issue [Unknown]

NARRATIVE: CASE EVENT DATE: 20230301
